FAERS Safety Report 22224021 (Version 3)
Quarter: 2025Q1

REPORT INFORMATION
  Report Type: Spontaneous
  Country: US (occurrence: US)
  Receive Date: 20230418
  Receipt Date: 20250116
  Transmission Date: 20250408
  Serious: No
  Sender: SUNOVION
  Company Number: US-UROVANT SCIENCES GMBH-202302-URV-000196

PATIENT

DRUGS (1)
  1. GEMTESA [Suspect]
     Active Substance: VIBEGRON
     Indication: Product used for unknown indication
     Dosage: 75 MG, QD
     Route: 048

REACTIONS (2)
  - Drug ineffective [Unknown]
  - Product use issue [Unknown]
